FAERS Safety Report 7457847-7 (Version None)
Quarter: 2011Q2

REPORT INFORMATION
  Report Type: 
  Country: None (occurrence: None)
  Receive Date: 20110504
  Receipt Date: 20110424
  Transmission Date: 20111010
  Serious: Yes (Other)
  Sender: FDA-Public Use
  Company Number: PHFR2011GB02726

PATIENT
  Sex: Female

DRUGS (1)
  1. CLOZARIL [Suspect]
     Indication: SCHIZOPHRENIA
     Route: 048
     Dates: start: 20110411

REACTIONS (7)
  - URINARY INCONTINENCE [None]
  - ABNORMAL BEHAVIOUR [None]
  - TACHYCARDIA [None]
  - BLOOD ALKALINE PHOSPHATASE INCREASED [None]
  - SALIVARY HYPERSECRETION [None]
  - CONFUSIONAL STATE [None]
  - C-REACTIVE PROTEIN INCREASED [None]
